FAERS Safety Report 4750100-1 (Version None)
Quarter: 2005Q3

REPORT INFORMATION
  Report Type: 
  Country: None (occurrence: None)
  Receive Date: 20050822
  Receipt Date: 20050802
  Transmission Date: 20060218
  Serious: Yes (Hospitalization)
  Sender: FDA-Public Use
  Company Number: S05-SWE-02920-01

PATIENT
  Age: 77 Year
  Sex: Female

DRUGS (8)
  1. EBIXA (MEMANTINE) [Suspect]
     Indication: DEMENTIA ALZHEIMER'S TYPE
     Dosage: 10 MG BID PO
     Route: 048
     Dates: start: 20040622, end: 20050113
  2. REMINYL [Suspect]
     Indication: DEMENTIA ALZHEIMER'S TYPE
     Dosage: 8 MG BID PO
     Route: 048
     Dates: start: 20030601, end: 20050215
  3. CITALOPRAM HYDROBROMIDE [Concomitant]
  4. LEVAXIN (LEVOTHYROXINE SODIUM) [Concomitant]
  5. LANSOPRAZOLE [Concomitant]
  6. KALCIPOS-D [Concomitant]
  7. OPTINATE (RISEDRONATE SODIUM) [Concomitant]
  8. ZOPIKLON [Concomitant]

REACTIONS (5)
  - ATRIAL FIBRILLATION [None]
  - BLOOD THYROID STIMULATING HORMONE INCREASED [None]
  - CEREBROVASCULAR ACCIDENT [None]
  - ELECTROCARDIOGRAM ST SEGMENT DEPRESSION [None]
  - THYROXINE INCREASED [None]
